FAERS Safety Report 18387148 (Version 1)
Quarter: 2020Q4

REPORT INFORMATION
  Report Type: Spontaneous
  Country: ES (occurrence: ES)
  Receive Date: 20201015
  Receipt Date: 20201015
  Transmission Date: 20210114
  Serious: Yes (Other)
  Sender: FDA-Public Use
  Company Number: ES-PFIZER INC-2020396643

PATIENT
  Age: 64 Year
  Sex: Female

DRUGS (13)
  1. CALCIUM CARBONATE/CALCIUM CITRATE/CALCIUM PHOSPHATE/CHOLECALCIFEROL/VITAMIN D [Suspect]
     Active Substance: CALCIUM CARBONATE\CALCIUM CITRATE\CALCIUM PHOSPHATE\CHOLECALCIFEROL\VITAMIN D
     Dosage: UNK
     Route: 065
  2. MIRTAZAPINE. [Suspect]
     Active Substance: MIRTAZAPINE
     Dosage: UNK
     Route: 065
  3. ALECTINIB. [Suspect]
     Active Substance: ALECTINIB
     Dosage: 900 MILLIGRAM, QD
     Route: 048
  4. NADROPARIN [Suspect]
     Active Substance: NADROPARIN
     Dosage: UNK
     Route: 065
  5. TORASEMIDE [Suspect]
     Active Substance: TORSEMIDE
     Dosage: UNK
     Route: 065
  6. PANTOPRAZOLE [Suspect]
     Active Substance: PANTOPRAZOLE
     Dosage: UNK
     Route: 065
  7. ALECTINIB. [Suspect]
     Active Substance: ALECTINIB
     Indication: NON-SMALL CELL LUNG CANCER
     Dosage: 1200 MILLIGRAM, QD
     Route: 048
  8. NALOXONE [Suspect]
     Active Substance: NALOXONE
     Dosage: UNK
     Route: 065
  9. ENOXAPARIN [Suspect]
     Active Substance: ENOXAPARIN
     Dosage: UNK
     Route: 065
  10. OXYCODONE [Suspect]
     Active Substance: OXYCODONE
     Dosage: UNK
     Route: 065
  11. DEXAMETHASONE. [Suspect]
     Active Substance: DEXAMETHASONE
     Dosage: UNK
     Route: 065
  12. ALECTINIB. [Suspect]
     Active Substance: ALECTINIB
     Dosage: 600 MILLIGRAM, QD
     Route: 048
  13. ZOPICLONE [Suspect]
     Active Substance: ZOPICLONE
     Dosage: UNK
     Route: 065

REACTIONS (19)
  - Metastases to central nervous system [Unknown]
  - Transaminases increased [Unknown]
  - Sepsis [Unknown]
  - Pyrexia [Unknown]
  - Rhabdomyolysis [Recovered/Resolved with Sequelae]
  - General physical health deterioration [Unknown]
  - Arthralgia [Unknown]
  - Peritonitis [Unknown]
  - Retroperitoneal haematoma [Unknown]
  - Cachexia [Unknown]
  - Gastritis [Unknown]
  - Large intestine perforation [Unknown]
  - Decreased appetite [Unknown]
  - Pelvic haematoma [Unknown]
  - Diverticulitis [Unknown]
  - Nausea [Unknown]
  - Pelvic pain [Unknown]
  - Retroperitoneal haemorrhage [Unknown]
  - Pyelonephritis [Unknown]
